FAERS Safety Report 23580276 (Version 2)
Quarter: 2024Q1

REPORT INFORMATION
  Report Type: Spontaneous
  Country: US (occurrence: US)
  Receive Date: 20240229
  Receipt Date: 20240318
  Transmission Date: 20240410
  Serious: Yes (Life-Threatening, Hospitalization)
  Sender: FDA-Public Use
  Company Number: US-Calliditas-2024CAL00288

PATIENT
  Age: 74 Year
  Sex: Male

DRUGS (1)
  1. TARPEYO [Suspect]
     Active Substance: BUDESONIDE
     Indication: IgA nephropathy
     Dosage: 16 MG (4 MG CAPSULES) ONCE DAILY
     Route: 048
     Dates: start: 20240103

REACTIONS (8)
  - Diabetic ketoacidosis [Unknown]
  - Dizziness [Unknown]
  - Muscle disorder [Unknown]
  - Acne [Unknown]
  - Localised infection [Unknown]
  - Product dose omission issue [Unknown]
  - General physical health deterioration [Unknown]
  - Dysphonia [Unknown]
